FAERS Safety Report 6882140-0 (Version None)
Quarter: 2010Q3

REPORT INFORMATION
  Report Type: 
  Country: None (occurrence: None)
  Receive Date: 20100729
  Receipt Date: 20100727
  Transmission Date: 20110219
  Serious: Yes (Death, Other)
  Sender: FDA-Public Use
  Company Number: US-SHIRE-ALL1-2010-04013

PATIENT

DRUGS (2)
  1. FOSRENOL [Suspect]
     Indication: HYPERPHOSPHATAEMIA
     Dosage: 1000 MG,(WITH MEALS) OTHER
     Route: 048
     Dates: start: 20100101
  2. MANY UNSPECIFIED MEDICATIONS [Concomitant]
     Indication: PRODUCT USED FOR UNKNOWN INDICATION
     Dosage: UNK, UNKNOWN
     Route: 065
     Dates: end: 20100101

REACTIONS (4)
  - ARTERIOVENOUS GRAFT SITE HAEMORRHAGE [None]
  - ATRIAL FIBRILLATION [None]
  - HYPOTENSION [None]
  - VASCULAR GRAFT COMPLICATION [None]
